FAERS Safety Report 21273732 (Version 3)
Quarter: 2022Q3

REPORT INFORMATION
  Report Type: Report from Study
  Country: US (occurrence: US)
  Receive Date: 20220831
  Receipt Date: 20220924
  Transmission Date: 20221027
  Serious: No
  Sender: FDA-Public Use
  Company Number: US-NOVARTISTESTPH-NVSC2022US195167

PATIENT
  Age: 48 Year
  Sex: Female

DRUGS (2)
  1. MAYZENT [Suspect]
     Active Substance: SIPONIMOD
     Indication: Multiple sclerosis
     Dosage: 0.25 MG, QD
     Route: 048
     Dates: start: 20220827
  2. MAYZENT [Suspect]
     Active Substance: SIPONIMOD
     Dosage: 2 MG, QD
     Route: 065

REACTIONS (5)
  - Muscular weakness [Recovered/Resolved]
  - Visual impairment [Recovered/Resolved]
  - Hypoaesthesia oral [Unknown]
  - Facial pain [Recovered/Resolved]
  - Contraindicated product administered [Unknown]

NARRATIVE: CASE EVENT DATE: 20220827
